FAERS Safety Report 23191396 (Version 1)
Quarter: 2023Q4

REPORT INFORMATION
  Report Type: Spontaneous
  Country: US (occurrence: US)
  Receive Date: 20231116
  Receipt Date: 20231116
  Transmission Date: 20240110
  Serious: Yes (Hospitalization, Other)
  Sender: FDA-Public Use
  Company Number: US-JNJFOC-20231124769

PATIENT
  Sex: Male

DRUGS (3)
  1. UPTRAVI [Suspect]
     Active Substance: SELEXIPAG
     Indication: Product used for unknown indication
     Route: 048
  2. AMBRISENTAN [Suspect]
     Active Substance: AMBRISENTAN
     Indication: Pulmonary arterial hypertension
     Route: 048
     Dates: start: 20211115
  3. TADALAFIL [Concomitant]
     Active Substance: TADALAFIL

REACTIONS (10)
  - Loss of consciousness [Not Recovered/Not Resolved]
  - Head injury [Unknown]
  - Dyspnoea [Unknown]
  - Cough [Not Recovered/Not Resolved]
  - Lung disorder [Not Recovered/Not Resolved]
  - Cardiac disorder [Not Recovered/Not Resolved]
  - Cardiomegaly [Not Recovered/Not Resolved]
  - Headache [Not Recovered/Not Resolved]
  - Eye pain [Not Recovered/Not Resolved]
  - Odynophagia [Not Recovered/Not Resolved]

NARRATIVE: CASE EVENT DATE: 20230918
